FAERS Safety Report 23936830 (Version 1)
Quarter: 2024Q2

REPORT INFORMATION
  Report Type: Spontaneous
  Country: CN (occurrence: CN)
  Receive Date: 20240604
  Receipt Date: 20240604
  Transmission Date: 20240716
  Serious: Yes (Life-Threatening, Other)
  Sender: FDA-Public Use
  Company Number: CN-BAYER-2024A080424

PATIENT
  Age: 70 Year
  Sex: Male

DRUGS (1)
  1. GADOBUTROL [Suspect]
     Active Substance: GADOBUTROL
     Indication: Magnetic resonance imaging
     Dosage: 15 ML, ONCE
     Route: 042
     Dates: start: 20240527, end: 20240527

REACTIONS (18)
  - Anaphylactic shock [Recovering/Resolving]
  - Dyspnoea [None]
  - Hyperhidrosis [None]
  - Pulmonary oedema [None]
  - Respiratory failure [None]
  - Asthma [None]
  - Tachypnoea [None]
  - Stridor [None]
  - Productive cough [None]
  - Chest discomfort [None]
  - Oxygen saturation decreased [Recovering/Resolving]
  - Blood pressure systolic increased [None]
  - Heart rate increased [None]
  - Respiratory rate increased [None]
  - PO2 decreased [None]
  - PCO2 decreased [None]
  - Blood potassium decreased [None]
  - Blood lactic acid increased [None]

NARRATIVE: CASE EVENT DATE: 20240527
